APPROVED DRUG PRODUCT: EXELON
Active Ingredient: RIVASTIGMINE TARTRATE
Strength: EQ 2MG BASE/ML
Dosage Form/Route: SOLUTION;ORAL
Application: N021025 | Product #001
Applicant: NOVARTIS PHARMACEUTICALS CORP
Approved: Apr 21, 2000 | RLD: Yes | RS: No | Type: DISCN